FAERS Safety Report 14638048 (Version 3)
Quarter: 2020Q2

REPORT INFORMATION
  Report Type: Report from Study
  Country: BG (occurrence: BG)
  Receive Date: 20180314
  Receipt Date: 20200416
  Transmission Date: 20200713
  Serious: Yes (Death, Hospitalization)
  Sender: FDA-Public Use
  Company Number: BG-SA-2018SA057173

PATIENT
  Age: 61 Year
  Sex: Male
  Weight: 94 kg

DRUGS (8)
  1. FOLINIC ACID [Suspect]
     Active Substance: LEUCOVORIN
     Dosage: UNK, QCY
     Route: 042
     Dates: start: 20180207, end: 20180207
  2. AFLIBERCEPT [Suspect]
     Active Substance: AFLIBERCEPT
     Indication: COLORECTAL CANCER METASTATIC
     Dosage: UNK, QCY (CUMMULATIVE DOSE WAS 12 MG/KG)
     Route: 042
     Dates: start: 20180207, end: 20180207
  3. IRINOTECAN [Suspect]
     Active Substance: IRINOTECAN
     Dosage: UNK, QCY
     Route: 042
     Dates: start: 20180207, end: 20180207
  4. AFLIBERCEPT [Suspect]
     Active Substance: AFLIBERCEPT
     Dosage: UNK, QCY (CUMMULATIVE DOSE WAS 12 MG/KG)
     Route: 042
     Dates: start: 20180110, end: 20180110
  5. FLUOROURACIL. [Suspect]
     Active Substance: FLUOROURACIL
     Indication: COLORECTAL CANCER METASTATIC
     Dosage: UNK, QCY
     Route: 042
     Dates: start: 20180110, end: 20180110
  6. FOLINIC ACID [Suspect]
     Active Substance: LEUCOVORIN
     Indication: COLORECTAL CANCER METASTATIC
     Dosage: UNK, QCY
     Route: 042
     Dates: start: 20180110, end: 20180110
  7. IRINOTECAN [Suspect]
     Active Substance: IRINOTECAN
     Indication: COLORECTAL CANCER METASTATIC
     Dosage: UNK, QCY
     Route: 042
     Dates: start: 20180110, end: 20180110
  8. FLUOROURACIL. [Suspect]
     Active Substance: FLUOROURACIL
     Dosage: UNK, QCY
     Route: 042
     Dates: start: 20180207, end: 20180207

REACTIONS (1)
  - Hydronephrosis [Fatal]

NARRATIVE: CASE EVENT DATE: 20180225
